FAERS Safety Report 7431834-7 (Version None)
Quarter: 2011Q2

REPORT INFORMATION
  Report Type: 
  Country: None (occurrence: None)
  Receive Date: 20110422
  Receipt Date: 20110411
  Transmission Date: 20111010
  Serious: Yes (Hospitalization, Other)
  Sender: FDA-Public Use
  Company Number: US-ELI_LILLY_AND_COMPANY-US201103003810

PATIENT
  Sex: Female
  Weight: 93.424 kg

DRUGS (10)
  1. BENTYL [Concomitant]
  2. SYMBICORT [Concomitant]
     Dosage: 160/4.5 PUFFS BID
  3. FORTEO [Suspect]
     Indication: OSTEOPOROSIS
     Dosage: 20 UG, DAILY (1/D)
     Dates: start: 20090601
  4. COREG [Concomitant]
     Dosage: 12.5 MG TWICE A DAY
  5. LASIX [Concomitant]
     Dosage: 20 MG/DAILY
  6. ZETIA [Concomitant]
     Dosage: 10 MG DAILY
  7. PROAIR HFA [Concomitant]
     Dosage: AS NEEDED
  8. HALCION [Concomitant]
     Dosage: 25 MG HS
  9. DICYCLOMINE [Concomitant]
     Dosage: 20 MG QD
  10. IRON SULFATETHIAMIN COMPOUND TAB [Concomitant]
     Dosage: TWICE A DAY

REACTIONS (1)
  - PSEUDOMONAS INFECTION [None]
